FAERS Safety Report 9592025 (Version 4)
Quarter: 2013Q4

REPORT INFORMATION
  Report Type: Report from Study
  Country: CA (occurrence: CA)
  Receive Date: 20131004
  Receipt Date: 20131216
  Transmission Date: 20140711
  Serious: Yes (Hospitalization, Other)
  Sender: FDA-Public Use
  Company Number: CA-BIOGENIDEC-2013BI094353

PATIENT
  Age: 32 Year
  Sex: Female

DRUGS (5)
  1. TYSABRI [Suspect]
     Indication: RELAPSING-REMITTING MULTIPLE SCLEROSIS
     Route: 042
     Dates: start: 20111129
  2. OMEGA 3 [Concomitant]
  3. VITAMIN C [Concomitant]
  4. B COMPLEX [Concomitant]
  5. VITAMIN D [Concomitant]

REACTIONS (4)
  - Fatigue [Recovered/Resolved]
  - Cholelithiasis [Recovered/Resolved with Sequelae]
  - Cholecystitis acute [Recovered/Resolved with Sequelae]
  - Bile duct stone [Recovered/Resolved with Sequelae]
